FAERS Safety Report 8101437-X (Version None)
Quarter: 2012Q1

REPORT INFORMATION
  Report Type: 
  Country: None (occurrence: None)
  Receive Date: 20120129
  Receipt Date: 20111008
  Transmission Date: 20120608
  Serious: No
  Sender: FDA-Public Use
  Company Number: US-ABBOTT-11P-163-0862844-00

PATIENT
  Age: 31 Year
  Sex: Female

DRUGS (7)
  1. RELPAX [Concomitant]
     Indication: MIGRAINE
  2. HUMIRA [Suspect]
     Indication: RHEUMATOID ARTHRITIS
     Dates: start: 20110818
  3. PROPRANOLOL [Concomitant]
     Indication: MIGRAINE
  4. ZOLOFT [Concomitant]
     Indication: ANXIETY
  5. UNKNOWN MEDICATION [Concomitant]
     Indication: ORAL CONTRACEPTION
  6. TOPAMAX [Concomitant]
     Indication: MIGRAINE
  7. LORAZEPAM [Concomitant]
     Indication: ANXIETY
     Dosage: AT BEDTIME

REACTIONS (3)
  - INJECTION SITE ERYTHEMA [None]
  - PRURITUS [None]
  - SKIN WARM [None]
